FAERS Safety Report 8379862-1 (Version None)
Quarter: 2012Q2

REPORT INFORMATION
  Report Type: 
  Country: None (occurrence: None)
  Receive Date: 20120523
  Receipt Date: 20120516
  Transmission Date: 20120825
  Serious: Yes (Hospitalization)
  Sender: FDA-Public Use
  Company Number: FR-PFIZER INC-2012118529

PATIENT
  Age: 68 Year
  Sex: Male

DRUGS (1)
  1. CELEBREX [Suspect]
     Indication: MUSCULOSKELETAL PAIN
     Dosage: UNK
     Route: 048
     Dates: start: 20120314, end: 20120320

REACTIONS (9)
  - DRUG ERUPTION [None]
  - TONGUE GEOGRAPHIC [None]
  - C-REACTIVE PROTEIN INCREASED [None]
  - HAEMOGLOBIN DECREASED [None]
  - PYREXIA [None]
  - NEUTROPENIA [None]
  - ORAL MUCOSA EROSION [None]
  - LYMPHOPENIA [None]
  - LYMPHADENOPATHY [None]
